FAERS Safety Report 23367478 (Version 3)
Quarter: 2024Q2

REPORT INFORMATION
  Report Type: Spontaneous
  Country: AU (occurrence: AU)
  Receive Date: 20240104
  Receipt Date: 20240620
  Transmission Date: 20240715
  Serious: Yes (Hospitalization, Other)
  Sender: FDA-Public Use
  Company Number: AU-MYLANLABS-2023M1138969

PATIENT
  Sex: Male

DRUGS (1)
  1. CLOZARIL [Suspect]
     Active Substance: CLOZAPINE
     Indication: Schizophrenia
     Dosage: 350 MILLIGRAM
     Route: 048
     Dates: start: 20230405

REACTIONS (3)
  - Hallucination, auditory [Unknown]
  - Mental impairment [Unknown]
  - Therapy interrupted [Unknown]
